FAERS Safety Report 4687157-2 (Version None)
Quarter: 2005Q2

REPORT INFORMATION
  Report Type: 
  Country: None (occurrence: None)
  Receive Date: 20050608
  Receipt Date: 20050601
  Transmission Date: 20051028
  Serious: Yes (Other)
  Sender: FDA-Public Use
  Company Number: S05-USA-01598-01

PATIENT
  Age: 79 Year
  Sex: Female

DRUGS (10)
  1. NAMENDA [Suspect]
     Indication: AMNESIA
     Dosage: 10 MG BID PO
     Route: 048
     Dates: start: 20040101, end: 20050324
  2. NAMENDA [Suspect]
     Indication: AMNESIA
     Dosage: 5 MG QD PO
     Route: 048
     Dates: start: 20040801, end: 20040101
  3. NAMENDA [Suspect]
     Indication: AMNESIA
     Dosage: 5 MG BID PO
     Route: 048
     Dates: start: 20040101, end: 20040101
  4. NAMENDA [Suspect]
     Indication: AMNESIA
     Dosage: 15 MG QD PO
     Route: 048
     Dates: start: 20040101, end: 20040101
  5. ARICEPT [Suspect]
     Indication: AMNESIA
     Dosage: 10 MG QD
     Dates: start: 20030101, end: 20050324
  6. ARICEPT [Suspect]
     Indication: AMNESIA
     Dosage: 5 MG QD
     Dates: start: 20050502
  7. COREG [Suspect]
  8. LISINOPRIL [Concomitant]
  9. NORVASC [Concomitant]
  10. ZOCOR [Concomitant]

REACTIONS (3)
  - COLITIS [None]
  - HAEMATOCHEZIA [None]
  - NASOPHARYNGITIS [None]
